FAERS Safety Report 10889227 (Version 2)
Quarter: 2018Q3

REPORT INFORMATION
  Report Type: Spontaneous
  Country: DE (occurrence: DE)
  Receive Date: 20150305
  Receipt Date: 20180817
  Transmission Date: 20181010
  Serious: Yes (Hospitalization, Other)
  Sender: FDA-Public Use
  Company Number: DE-MYLANLABS-2015M1005696

PATIENT
  Age: 34 Year
  Sex: Male
  Weight: 81 kg

DRUGS (5)
  1. MIRTAZAPINE. [Suspect]
     Active Substance: MIRTAZAPINE
     Indication: SLEEP DISORDER
     Dosage: 30 MG, QD (DAILY DOSE: 30 MG MILLGRAM(S) EVERY DAYS)
     Route: 048
     Dates: start: 20140818, end: 20150113
  2. CLOZAPINE. [Suspect]
     Active Substance: CLOZAPINE
     Dosage: 150 MG, BID (DAILY DOSE: 300 MG MILLGRAM(S) EVERY DAYS)
     Dates: start: 20140911, end: 20150113
  3. RISPERIDONE. [Suspect]
     Active Substance: RISPERIDONE
     Indication: SCHIZOPHRENIA
     Dosage: 1 MG, QD (DAILY DOSE: 1 MG MILLGRAM(S) EVERY DAYS)
     Dates: start: 20140813, end: 20150113
  4. CLOZAPINE. [Suspect]
     Active Substance: CLOZAPINE
     Indication: SCHIZOPHRENIA
     Dosage: 100 MG, BID (DAILY DOSE: 200 MG MILLGRAM(S) EVERY DAYS)
     Dates: start: 20140911, end: 20150113
  5. PIRENZEPIN [Concomitant]
     Active Substance: PIRENZEPINE
     Indication: SALIVARY HYPERSECRETION
     Dosage: 50 MG, QD (DAILY DOSE: 50 MG MILLGRAM(S) EVERY DAYS)
     Route: 048
     Dates: start: 20140919, end: 20150113

REACTIONS (4)
  - Rhabdomyolysis [Recovered/Resolved]
  - Hyperthermia [Recovering/Resolving]
  - Viral infection [Recovered/Resolved]
  - Neuroleptic malignant syndrome [Recovered/Resolved]

NARRATIVE: CASE EVENT DATE: 20150113
